FAERS Safety Report 21302275 (Version 2)
Quarter: 2022Q4

REPORT INFORMATION
  Report Type: Spontaneous
  Country: US (occurrence: None)
  Receive Date: 20220907
  Receipt Date: 20221020
  Transmission Date: 20230113
  Serious: No
  Sender: FDA-Public Use
  Company Number: 2022A303655

PATIENT
  Age: 754 Month
  Sex: Male
  Weight: 145.2 kg

DRUGS (4)
  1. BRILINTA [Suspect]
     Active Substance: TICAGRELOR
     Indication: Stent placement
     Route: 048
     Dates: start: 202208
  2. METOPROLOL [Suspect]
     Active Substance: METOPROLOL
     Route: 065
     Dates: start: 202208
  3. HYDROCHLOROTHIAZIDE [Concomitant]
     Active Substance: HYDROCHLOROTHIAZIDE
  4. NITROGLYCERIN [Concomitant]
     Active Substance: NITROGLYCERIN

REACTIONS (11)
  - Sleep apnoea syndrome [Unknown]
  - Weight decreased [Unknown]
  - Sleep disorder [Unknown]
  - Feeling abnormal [Unknown]
  - Cough [Unknown]
  - Chest pain [Unknown]
  - Heart rate abnormal [Unknown]
  - Bradycardia [Unknown]
  - Dizziness [Unknown]
  - Dyspnoea [Unknown]
  - Intentional dose omission [Unknown]

NARRATIVE: CASE EVENT DATE: 20220801
